FAERS Safety Report 25188110 (Version 1)
Quarter: 2025Q2

REPORT INFORMATION
  Report Type: Other
  Country: US (occurrence: US)
  Receive Date: 20250411
  Receipt Date: 20250411
  Transmission Date: 20250717
  Serious: Yes (Death, Other)
  Sender: ALVOGEN
  Company Number: US-ALVOGEN-2025096667

PATIENT
  Age: 61 Year
  Sex: Female

DRUGS (3)
  1. HYDROCODONE [Suspect]
     Active Substance: HYDROCODONE
     Indication: Suicide attempt
     Route: 065
  2. MORPHINE [Suspect]
     Active Substance: MORPHINE
     Indication: Suicide attempt
     Route: 065
  3. BACLOFEN [Suspect]
     Active Substance: BACLOFEN
     Indication: Suicide attempt
     Route: 065

REACTIONS (1)
  - Completed suicide [Fatal]
